FAERS Safety Report 5896832-3 (Version None)
Quarter: 2008Q3

REPORT INFORMATION
  Report Type: 
  Country: None (occurrence: None)
  Receive Date: 20080924
  Receipt Date: 20080917
  Transmission Date: 20090109
  Serious: Yes (Hospitalization, Other)
  Sender: FDA-Public Use
  Company Number: US-BAXTER-2008BH002020

PATIENT
  Sex: Male
  Weight: 74 kg

DRUGS (5)
  1. HEPARIN SODIUM INJECTION [Suspect]
     Indication: PROPHYLAXIS
     Route: 033
     Dates: start: 20080101, end: 20080201
  2. CLONIDINE [Concomitant]
     Indication: HYPERTENSION
     Route: 048
     Dates: start: 20070301
  3. DILTIAZEM HCL [Concomitant]
     Indication: HYPERTENSION
     Route: 048
     Dates: start: 20070301
  4. LANTUS [Concomitant]
     Indication: DIABETES MELLITUS
     Dosage: DOSE UNIT:UNKNOWN
     Route: 065
     Dates: start: 20080201
  5. NOVOLIN [Concomitant]
     Indication: DIABETES MELLITUS
     Dosage: DOSE UNIT:UNKNOWN
     Route: 058
     Dates: start: 20070101, end: 20080201

REACTIONS (15)
  - DIPLOPIA [None]
  - HEART RATE INCREASED [None]
  - HYPERHIDROSIS [None]
  - MALAISE [None]
  - NAUSEA [None]
  - OEDEMA PERIPHERAL [None]
  - PERIPHERAL COLDNESS [None]
  - PERITONEAL DIALYSIS COMPLICATION [None]
  - PRURITUS [None]
  - RASH [None]
  - RESTLESSNESS [None]
  - RETCHING [None]
  - STOMACH DISCOMFORT [None]
  - THIRST [None]
  - VOMITING [None]
